FAERS Safety Report 5093610-2 (Version None)
Quarter: 2006Q3

REPORT INFORMATION
  Report Type: 
  Country: None (occurrence: None)
  Receive Date: 20060829
  Receipt Date: 20060815
  Transmission Date: 20061208
  Serious: Yes (Hospitalization)
  Sender: FDA-Public Use
  Company Number: 2006PV019448

PATIENT
  Age: 47 Year
  Sex: Male
  Weight: 99.7913 kg

DRUGS (11)
  1. BYETTA [Suspect]
     Indication: DIABETES MELLITUS NON-INSULIN-DEPENDENT
     Dosage: 5 MCG; QD; SC
     Route: 058
     Dates: start: 20060101
  2. ASPIRIN [Concomitant]
  3. METOCLOPRAMIDE [Concomitant]
  4. FUROSEMIDE [Concomitant]
  5. KLOR-CON [Concomitant]
  6. AVANDIA [Concomitant]
  7. GLYBURIDE [Concomitant]
  8. NORVASC [Concomitant]
  9. TOPROL-XL [Concomitant]
  10. TRICOR [Concomitant]
  11. VYTORIN [Concomitant]

REACTIONS (25)
  - ANAEMIA [None]
  - ARTHRALGIA [None]
  - BLOOD GLUCOSE DECREASED [None]
  - BLOOD PRESSURE INCREASED [None]
  - BLOOD TEST ABNORMAL [None]
  - CONFUSIONAL STATE [None]
  - DEHYDRATION [None]
  - FEELING COLD [None]
  - GASTRIC ULCER [None]
  - HEPATOMEGALY [None]
  - HYPERHIDROSIS [None]
  - HYPOTHERMIA [None]
  - LIMB INJURY [None]
  - LOCALISED INFECTION [None]
  - LOSS OF CONSCIOUSNESS [None]
  - MOBILITY DECREASED [None]
  - MULTIPLE MYELOMA [None]
  - MUSCULOSKELETAL PAIN [None]
  - MYOCARDIAL INFARCTION [None]
  - OEDEMA [None]
  - ORTHOSTATIC HYPOTENSION [None]
  - PAIN IN EXTREMITY [None]
  - PROTEIN URINE [None]
  - SOFT TISSUE INFECTION [None]
  - WEIGHT FLUCTUATION [None]
